FAERS Safety Report 7220643-X (Version None)
Quarter: 2011Q1

REPORT INFORMATION
  Report Type: 
  Country: None (occurrence: None)
  Receive Date: 20110111
  Receipt Date: 20101227
  Transmission Date: 20110831
  Serious: Yes (Death)
  Sender: FDA-Public Use
  Company Number: JP-ABBOTT-10P-087-0690247-00

PATIENT
  Age: 84 Year
  Sex: Male

DRUGS (6)
  1. LEUPROLIDE ACETATE [Suspect]
     Indication: PROSTATE CANCER STAGE IV
     Route: 058
     Dates: start: 20070322, end: 20081030
  2. ALDACTONE [Concomitant]
     Indication: CARDIAC FAILURE
     Route: 048
     Dates: start: 20070225, end: 20081030
  3. LASIX [Concomitant]
     Indication: CARDIAC FAILURE
     Route: 048
     Dates: start: 20070225
  4. ASPIRIN [Concomitant]
     Indication: CARDIAC FAILURE
     Route: 048
     Dates: start: 20070228, end: 20081030
  5. BICALUTAMIDE [Concomitant]
     Indication: PROSTATE CANCER STAGE IV
     Route: 048
     Dates: start: 20070305, end: 20090106
  6. GASTER [Concomitant]
     Indication: PROPHYLAXIS AGAINST GASTROINTESTINAL ULCER
     Route: 048
     Dates: start: 20070225

REACTIONS (1)
  - GASTROINTESTINAL HAEMORRHAGE [None]
